FAERS Safety Report 7938304-8 (Version None)
Quarter: 2011Q4

REPORT INFORMATION
  Report Type: 
  Country: None (occurrence: None)
  Receive Date: 20111123
  Receipt Date: 20111114
  Transmission Date: 20120403
  Serious: Yes (Other)
  Sender: FDA-Public Use
  Company Number: CA-ASTRAZENECA-2011SE68822

PATIENT
  Age: 60 Year
  Sex: Female
  Weight: 68 kg

DRUGS (6)
  1. NEXIUM [Suspect]
     Route: 048
  2. MAGNESIUM SULFATE [Concomitant]
  3. NAPRELAN [Suspect]
     Route: 048
  4. VITAMIN D [Concomitant]
  5. CALCIUM [Concomitant]
  6. LOVAZA [Concomitant]

REACTIONS (1)
  - EXTRASYSTOLES [None]
